FAERS Safety Report 25274262 (Version 2)
Quarter: 2025Q2

REPORT INFORMATION
  Report Type: Spontaneous
  Country: US (occurrence: US)
  Receive Date: 20250506
  Receipt Date: 20250526
  Transmission Date: 20250717
  Serious: Yes (Death)
  Sender: ARDELYX
  Company Number: US-ARDELYX-2025ARDX003028

PATIENT
  Age: 71 Year
  Sex: Male

DRUGS (1)
  1. XPHOZAH [Suspect]
     Active Substance: TENAPANOR HYDROCHLORIDE
     Indication: Product used for unknown indication
     Route: 065
     Dates: start: 202409, end: 2024

REACTIONS (2)
  - Death [Fatal]
  - Diarrhoea [Unknown]

NARRATIVE: CASE EVENT DATE: 20241026
